FAERS Safety Report 23847775 (Version 1)
Quarter: 2024Q2

REPORT INFORMATION
  Report Type: Report from Study
  Country: US (occurrence: US)
  Receive Date: 20240513
  Receipt Date: 20240513
  Transmission Date: 20240716
  Serious: Yes (Hospitalization)
  Sender: FDA-Public Use
  Company Number: US-GILEAD-2024-0665630

PATIENT
  Age: 52 Year
  Sex: Female

DRUGS (11)
  1. AZTREONAM LYSINE [Suspect]
     Active Substance: AZTREONAM LYSINE
     Indication: Cystic fibrosis lung
     Dosage: 75MG. INHALE 1ML VIA NEBULIZER EVERY 8 HOURS FOR 28 DAYS ON AND 28 DAYS OFF. ALTERNATE EVERY MONTH
     Route: 055
     Dates: start: 20220524
  2. AZITHROMYCIN [Concomitant]
     Active Substance: AZITHROMYCIN
  3. BUDESONIDE [Concomitant]
     Active Substance: BUDESONIDE
  4. LEVEMIR [Concomitant]
     Active Substance: INSULIN DETEMIR
  5. MYCOPHENOLIC ACID [Concomitant]
     Active Substance: MYCOPHENOLIC ACID
  6. VALGANCICLOVIR [Concomitant]
     Active Substance: VALGANCICLOVIR
  7. ELIQUIS [Concomitant]
     Active Substance: APIXABAN
  8. ITRACONAZOLE [Concomitant]
     Active Substance: ITRACONAZOLE
  9. SULFAMETHOXAZOLE\TRIMETHOPRIM [Concomitant]
     Active Substance: SULFAMETHOXAZOLE\TRIMETHOPRIM
  10. TOBRAMYCIN [Concomitant]
     Active Substance: TOBRAMYCIN\TOBRAMYCIN SULFATE
  11. PREDNISOLONE [Concomitant]
     Active Substance: PREDNISOLONE

REACTIONS (6)
  - COVID-19 [Unknown]
  - Dyspnoea [Unknown]
  - Nasal inflammation [Unknown]
  - Nasal congestion [Unknown]
  - Abnormal faeces [Unknown]
  - Product dose omission issue [Unknown]

NARRATIVE: CASE EVENT DATE: 20240419
